FAERS Safety Report 4378700-1 (Version None)
Quarter: 2004Q2

REPORT INFORMATION
  Report Type: 
  Country: None (occurrence: None)
  Receive Date: 20040610
  Receipt Date: 20040602
  Transmission Date: 20050107
  Serious: Yes (Hospitalization, Other)
  Sender: FDA-Public Use
  Company Number: GBWYE804404JUN04

PATIENT
  Age: 34 Year
  Sex: Male

DRUGS (9)
  1. RAPAMUNE [Suspect]
     Indication: IMMUNOSUPPRESSANT DRUG THERAPY
     Dosage: 5 MG 1X PER 1 DAY
     Route: 048
     Dates: start: 20031017
  2. MYCOPHENOLATE MOFETIL (MYCOPHENOLATE MOFETIL) [Concomitant]
  3. ZENAPAX [Concomitant]
  4. PREDNISOLONE [Concomitant]
  5. ATENOLOL [Concomitant]
  6. NIFEDIPINE [Concomitant]
  7. CO-TRIMOXAZOLE (SULFAMETHAZOLE/TRIMETHOPRIM) [Concomitant]
  8. ATORVASTATIN (ATORVASTATIN) [Concomitant]
  9. ASPIRIN [Concomitant]

REACTIONS (3)
  - ABDOMINAL PAIN [None]
  - DIARRHOEA [None]
  - LETHARGY [None]
